FAERS Safety Report 18673089 (Version 1)
Quarter: 2020Q4

REPORT INFORMATION
  Report Type: Spontaneous
  Country: US (occurrence: US)
  Receive Date: 20201228
  Receipt Date: 20201228
  Transmission Date: 20210114
  Serious: No
  Sender: FDA-Public Use
  Company Number: US-PFIZER INC-2020506463

PATIENT
  Age: 41 Year
  Sex: Female
  Weight: 142.88 kg

DRUGS (1)
  1. DEPO-PROVERA [Suspect]
     Active Substance: MEDROXYPROGESTERONE ACETATE
     Indication: ENDOMETRIOSIS
     Dosage: 1 DF, EVERY 3 MONTHS
     Route: 058

REACTIONS (3)
  - Hot flush [Unknown]
  - Feeling hot [Unknown]
  - Mood swings [Unknown]

NARRATIVE: CASE EVENT DATE: 20201217
